FAERS Safety Report 17640594 (Version 1)
Quarter: 2020Q2

REPORT INFORMATION
  Report Type: Spontaneous
  Country: TW (occurrence: TW)
  Receive Date: 20200408
  Receipt Date: 20200408
  Transmission Date: 20200713
  Serious: Yes (Hospitalization, Other)
  Sender: FDA-Public Use
  Company Number: TW-MACLEODS PHARMACEUTICALS US LTD-MAC2020025547

PATIENT

DRUGS (1)
  1. SILDENAFIL 100 MG TABLET [Suspect]
     Active Substance: SILDENAFIL
     Indication: PRODUCT USED FOR UNKNOWN INDICATION
     Dosage: 0.5 DOSAGE FORM TOTAL, HALF A TABLET OF SILDENAFIL (100MG/TABLET)
     Route: 065

REACTIONS (4)
  - Central nervous system lesion [Recovered/Resolved]
  - Cytotoxic oedema [Recovered/Resolved]
  - Wrong technique in product usage process [Recovered/Resolved]
  - Transient global amnesia [Recovered/Resolved]
